FAERS Safety Report 9121148 (Version 1)
Quarter: 2013Q1

REPORT INFORMATION
  Report Type: Spontaneous
  Country: US (occurrence: US)
  Receive Date: 20130226
  Receipt Date: 20130226
  Transmission Date: 20140127
  Serious: Yes (Other)
  Sender: FDA-Public Use
  Company Number: US-ROCHE-1190218

PATIENT
  Age: 54 Year
  Sex: 0

DRUGS (4)
  1. TAMIFLU [Suspect]
     Indication: INFLUENZA
     Route: 065
     Dates: start: 20121224
  2. AZILECT [Concomitant]
     Indication: PARKINSON^S DISEASE
     Route: 065
  3. PRAMIPEXOLE [Concomitant]
     Indication: PARKINSON^S DISEASE
     Route: 065
  4. BENICAR [Concomitant]
     Route: 065

REACTIONS (1)
  - Alopecia [Not Recovered/Not Resolved]
